FAERS Safety Report 16612652 (Version 1)
Quarter: 2019Q3

REPORT INFORMATION
  Report Type: Spontaneous
  Country: US (occurrence: US)
  Receive Date: 20190722
  Receipt Date: 20190722
  Transmission Date: 20191004
  Serious: Yes (Hospitalization)
  Sender: FDA-Public Use
  Company Number: None

PATIENT
  Age: 71 Year
  Sex: Female

DRUGS (1)
  1. CAPECITABINE. [Suspect]
     Active Substance: CAPECITABINE
     Dates: start: 20190702, end: 20190718

REACTIONS (3)
  - Dehydration [None]
  - Chromaturia [None]
  - Renal impairment [None]

NARRATIVE: CASE EVENT DATE: 20190718
